FAERS Safety Report 8009383-7 (Version None)
Quarter: 2011Q4

REPORT INFORMATION
  Report Type: 
  Country: None (occurrence: None)
  Receive Date: 20111227
  Receipt Date: 20081021
  Transmission Date: 20120403
  Serious: Yes (Other)
  Sender: FDA-Public Use
  Company Number: GB-SANTEN INC.-INC-11-000194

PATIENT
  Age: 78 Year
  Sex: Male

DRUGS (6)
  1. LIPITOR [Concomitant]
  2. ATENOLOL [Concomitant]
  3. OMEPRAZOLE [Concomitant]
  4. ASPIRIN [Concomitant]
  5. TIMOLOL MALEATE [Suspect]
     Indication: GLAUCOMA
     Route: 047
     Dates: start: 20040201
  6. RAMIPRIL [Concomitant]

REACTIONS (6)
  - MYOCARDIAL INFARCTION [None]
  - PRODUCT CONTAINER ISSUE [None]
  - EYE PAIN [None]
  - DRY EYE [None]
  - EYE DISORDER [None]
  - ACCIDENTAL OVERDOSE [None]
